FAERS Safety Report 16394403 (Version 1)
Quarter: 2019Q2

REPORT INFORMATION
  Report Type: Report from Study
  Country: US (occurrence: US)
  Receive Date: 20190605
  Receipt Date: 20190605
  Transmission Date: 20190711
  Serious: Yes (Other)
  Sender: FDA-Public Use
  Company Number: US-JNJFOC-20190602603

PATIENT
  Age: 82 Year
  Sex: Male

DRUGS (6)
  1. BYSTOLIC [Concomitant]
     Active Substance: NEBIVOLOL HYDROCHLORIDE
  2. CETIRIZINE HYDROCHLORIDE. [Concomitant]
     Active Substance: CETIRIZINE HYDROCHLORIDE
  3. ENTRESTO [Concomitant]
     Active Substance: SACUBITRIL\VALSARTAN
  4. AMMONIUM CHLORIDE W/DIPHENHYDRAMINE [Concomitant]
  5. CARVEDILOL. [Concomitant]
     Active Substance: CARVEDILOL
  6. IMBRUVICA [Suspect]
     Active Substance: IBRUTINIB
     Indication: CHRONIC LYMPHOCYTIC LEUKAEMIA
     Route: 048
     Dates: start: 20180421

REACTIONS (4)
  - Skin ulcer [Unknown]
  - Haemorrhage urinary tract [Unknown]
  - Fatigue [Unknown]
  - Asthenia [Unknown]

NARRATIVE: CASE EVENT DATE: 201904
